FAERS Safety Report 12478490 (Version 1)
Quarter: 2016Q2

REPORT INFORMATION
  Report Type: Spontaneous
  Country: US (occurrence: US)
  Receive Date: 20160618
  Receipt Date: 20160618
  Transmission Date: 20160815
  Serious: No
  Sender: FDA-Public Use
  Company Number: US-ASTRAZENECA-2014SE65344

PATIENT
  Age: 70 Year
  Sex: Female
  Weight: 82.1 kg

DRUGS (7)
  1. VITAMIN B12 [Concomitant]
     Active Substance: CYANOCOBALAMIN
  2. METFORMIN HCL [Concomitant]
     Active Substance: METFORMIN HYDROCHLORIDE
  3. JANUVIA [Concomitant]
     Active Substance: SITAGLIPTIN PHOSPHATE
  4. BYETTA [Concomitant]
     Active Substance: EXENATIDE
  5. VICTOZA [Concomitant]
     Active Substance: LIRAGLUTIDE
     Indication: TYPE 2 DIABETES MELLITUS
     Route: 058
     Dates: start: 2015
  6. BYDUREON [Suspect]
     Active Substance: EXENATIDE
     Indication: TYPE 2 DIABETES MELLITUS
     Route: 058
     Dates: start: 20140515, end: 2015
  7. OXYBUTIN [Concomitant]
     Active Substance: OXYBUTYNIN
     Indication: BLADDER DISORDER

REACTIONS (5)
  - Injection site bruising [Recovered/Resolved]
  - Injection site mass [Recovered/Resolved]
  - Injection site pain [Not Recovered/Not Resolved]
  - Injection site nodule [Not Recovered/Not Resolved]
  - Product quality issue [Unknown]

NARRATIVE: CASE EVENT DATE: 2014
